FAERS Safety Report 5102366-6 (Version None)
Quarter: 2006Q3

REPORT INFORMATION
  Report Type: 
  Country: None (occurrence: None)
  Receive Date: 20060912
  Receipt Date: 20060719
  Transmission Date: 20061208
  Serious: No
  Sender: FDA-Public Use
  Company Number: US-GLAXOSMITHKLINE-A0612793A

PATIENT
  Age: 72 Year
  Sex: Female

DRUGS (7)
  1. FLOVENT [Suspect]
     Indication: DRUG USE FOR UNKNOWN INDICATION
     Dosage: 2PUFF TWICE PER DAY
     Route: 055
     Dates: start: 20050401
  2. SINGULAIR [Concomitant]
     Dosage: 1TAB PER DAY
     Route: 048
     Dates: start: 20010214
  3. MONOPRIL [Concomitant]
     Indication: BLOOD PRESSURE
     Dosage: 1TAB PER DAY
     Route: 048
     Dates: start: 20010309
  4. HYDROCHLOROTHIAZIDE [Concomitant]
     Indication: DIURETIC THERAPY
     Dosage: 1TAB PER DAY
     Route: 048
     Dates: start: 20040216
  5. LIPITOR [Concomitant]
     Dosage: 1TAB PER DAY
     Route: 048
     Dates: start: 20030711
  6. COMBIVENT [Concomitant]
     Indication: ASTHMA
     Dosage: 2PUFF FOUR TIMES PER DAY
     Route: 055
     Dates: start: 20020516
  7. NEXIUM [Concomitant]
     Dosage: 1CAP PER DAY
     Route: 048

REACTIONS (3)
  - CHEST PAIN [None]
  - PHARMACEUTICAL PRODUCT COMPLAINT [None]
  - THROAT IRRITATION [None]
